FAERS Safety Report 13338965 (Version 1)
Quarter: 2017Q1

REPORT INFORMATION
  Report Type: Spontaneous
  Country: US (occurrence: US)
  Receive Date: 20170315
  Receipt Date: 20170315
  Transmission Date: 20170428
  Serious: Yes (Other)
  Sender: FDA-Public Use
  Company Number: US-WARNER CHILCOTT, LLC-1064273

PATIENT
  Sex: Female

DRUGS (1)
  1. DELZICOL [Suspect]
     Active Substance: MESALAMINE
     Indication: PROCTITIS
     Route: 048

REACTIONS (3)
  - Diarrhoea [Unknown]
  - Rectal haemorrhage [Unknown]
  - Rectal discharge [Unknown]
